FAERS Safety Report 25134741 (Version 2)
Quarter: 2025Q2

REPORT INFORMATION
  Report Type: Spontaneous
  Country: US (occurrence: US)
  Receive Date: 20250328
  Receipt Date: 20250415
  Transmission Date: 20250716
  Serious: No
  Sender: MERZ
  Company Number: US-MRZWEB-2025030000162

PATIENT

DRUGS (3)
  1. XEOMIN [Suspect]
     Active Substance: INCOBOTULINUMTOXINA
     Indication: Skin wrinkling
     Dosage: 45 INTERNATIONAL UNIT
     Dates: start: 20250128, end: 20250128
  2. XEOMIN [Suspect]
     Active Substance: INCOBOTULINUMTOXINA
     Indication: Skin cosmetic procedure
  3. XEOMIN [Suspect]
     Active Substance: INCOBOTULINUMTOXINA
     Indication: Skin cosmetic procedure

REACTIONS (6)
  - Drug ineffective [Unknown]
  - Urticaria [Recovered/Resolved]
  - Off label use [Unknown]
  - Overdose [Unknown]
  - Underdose [Unknown]
  - Product preparation issue [Unknown]

NARRATIVE: CASE EVENT DATE: 20250101
